FAERS Safety Report 14542069 (Version 1)
Quarter: 2018Q1

REPORT INFORMATION
  Report Type: Spontaneous
  Country: FR (occurrence: FR)
  Receive Date: 20180216
  Receipt Date: 20180216
  Transmission Date: 20180509
  Serious: Yes (Hospitalization)
  Sender: FDA-Public Use
  Company Number: FR-OTSUKA-DJ201304650

PATIENT
  Age: 80 Year
  Sex: Female

DRUGS (11)
  1. KARDEGIC [Concomitant]
     Active Substance: ASPIRIN DL-LYSINE
     Indication: PRODUCT USED FOR UNKNOWN INDICATION
     Dosage: UNK
     Route: 065
  2. TEMESTA (LORAZEPAM) [Suspect]
     Active Substance: LORAZEPAM
     Indication: PRODUCT USED FOR UNKNOWN INDICATION
     Dosage: 1 MG, UNK
     Route: 048
  3. TAHOR [Concomitant]
     Active Substance: ATORVASTATIN CALCIUM
     Indication: PRODUCT USED FOR UNKNOWN INDICATION
     Dosage: UNK
     Route: 065
  4. ANAFRANIL [Suspect]
     Active Substance: CLOMIPRAMINE HYDROCHLORIDE
     Indication: PRODUCT USED FOR UNKNOWN INDICATION
     Dosage: 75 MG, UNK
     Route: 048
  5. ABILIFY [Suspect]
     Active Substance: ARIPIPRAZOLE
     Indication: PRODUCT USED FOR UNKNOWN INDICATION
     Dosage: 0.5 MG, UNK
     Route: 048
  6. CYMBALTA [Suspect]
     Active Substance: DULOXETINE HYDROCHLORIDE
     Indication: PRODUCT USED FOR UNKNOWN INDICATION
     Dosage: 30 MG, UNK
     Route: 048
  7. LEPTICUR [Suspect]
     Active Substance: TROPATEPINE HYDROCHLORIDE
     Indication: PRODUCT USED FOR UNKNOWN INDICATION
     Dosage: 10 MG, UNK
     Route: 048
     Dates: end: 20130603
  8. SINTROM [Concomitant]
     Active Substance: ACENOCOUMAROL
     Indication: PRODUCT USED FOR UNKNOWN INDICATION
     Dosage: UNK
     Route: 065
  9. ATORVASTATIN [Concomitant]
     Active Substance: ATORVASTATIN
     Indication: PRODUCT USED FOR UNKNOWN INDICATION
     Dosage: UNK
     Route: 065
  10. TIAPRIDAL [Suspect]
     Active Substance: TIAPRIDE HYDROCHLORIDE
     Indication: PRODUCT USED FOR UNKNOWN INDICATION
     Dosage: 1 DF, UNK
     Route: 065
  11. TEMERIT [Concomitant]
     Active Substance: NEBIVOLOL
     Indication: PRODUCT USED FOR UNKNOWN INDICATION
     Dosage: UNK
     Route: 065

REACTIONS (4)
  - Fall [Not Recovered/Not Resolved]
  - Urinary retention [Not Recovered/Not Resolved]
  - Confusional state [Not Recovered/Not Resolved]
  - Drug interaction [Not Recovered/Not Resolved]

NARRATIVE: CASE EVENT DATE: 20130603
